FAERS Safety Report 14313200 (Version 1)
Quarter: 2017Q4

REPORT INFORMATION
  Report Type: Spontaneous
  Country: US (occurrence: US)
  Receive Date: 20171221
  Receipt Date: 20171221
  Transmission Date: 20180321
  Serious: No
  Sender: FDA-Public Use
  Company Number: US-009507513-1711USA012809

PATIENT
  Age: 56 Year
  Sex: Female

DRUGS (3)
  1. TEMODAR [Suspect]
     Active Substance: TEMOZOLOMIDE
     Indication: METASTASES TO CENTRAL NERVOUS SYSTEM
     Dosage: 200 MG/M2 DAYS 1-5 EVERY 28 DAYS (4 WEEKS)
     Route: 048
     Dates: start: 2014, end: 201501
  2. TEMODAR [Suspect]
     Active Substance: TEMOZOLOMIDE
     Dosage: 200 MG/M2 DAYS 1-5 EVERY 28 DAYS (4 WEEKS)
     Route: 048
     Dates: start: 2015
  3. TEMODAR [Suspect]
     Active Substance: TEMOZOLOMIDE
     Indication: SMALL CELL LUNG CANCER EXTENSIVE STAGE
     Dosage: 200 MG/M2 DAYS 1-5 EVERY 28 DAYS (4 WEEKS)
     Route: 048
     Dates: start: 201211, end: 201406

REACTIONS (3)
  - Fatigue [Unknown]
  - Off label use [Unknown]
  - Nausea [Unknown]

NARRATIVE: CASE EVENT DATE: 201211
